FAERS Safety Report 16019546 (Version 1)
Quarter: 2019Q1

REPORT INFORMATION
  Report Type: Spontaneous
  Country: FR (occurrence: FR)
  Receive Date: 20190228
  Receipt Date: 20190228
  Transmission Date: 20190418
  Serious: Yes (Other)
  Sender: FDA-Public Use
  Company Number: FR-TEVA-2019-FR-1016961

PATIENT
  Age: 69 Year
  Sex: Female

DRUGS (4)
  1. CORTANCYL [Suspect]
     Active Substance: PREDNISONE
     Route: 048
  2. CELLCEPT [Suspect]
     Active Substance: MYCOPHENOLATE MOFETIL\MYCOPHENOLATE MOFETIL HYDROCHLORIDE
     Route: 048
  3. FURADANTINE [Suspect]
     Active Substance: NITROFURANTOIN
     Route: 048
     Dates: start: 20140616, end: 20140623
  4. NEORAL [Suspect]
     Active Substance: CYCLOSPORINE
     Route: 048

REACTIONS (1)
  - Gastroenteritis cryptosporidial [Unknown]

NARRATIVE: CASE EVENT DATE: 20140620
